FAERS Safety Report 13655005 (Version 1)
Quarter: 2017Q2

REPORT INFORMATION
  Report Type: Spontaneous
  Country: GB (occurrence: GB)
  Receive Date: 20170615
  Receipt Date: 20170615
  Transmission Date: 20170830
  Serious: Yes (Hospitalization, Other)
  Sender: FDA-Public Use
  Company Number: GB-ABBVIE-17K-167-2007356-00

PATIENT
  Age: 47 Year
  Sex: Male

DRUGS (1)
  1. HUMIRA [Suspect]
     Active Substance: ADALIMUMAB
     Indication: ANKYLOSING SPONDYLITIS
     Route: 058
     Dates: start: 20140428, end: 20170301

REACTIONS (6)
  - Generalised erythema [Recovered/Resolved]
  - Palpitations [Recovered/Resolved]
  - Swelling face [Recovered/Resolved]
  - Device issue [Unknown]
  - Syncope [Recovered/Resolved]
  - Peripheral swelling [Recovered/Resolved]
